FAERS Safety Report 10227128 (Version 1)
Quarter: 2014Q2

REPORT INFORMATION
  Report Type: Spontaneous
  Country: ES (occurrence: None)
  Receive Date: 20140606
  Receipt Date: 20140606
  Transmission Date: 20141212
  Serious: Yes (Other)
  Sender: FDA-Public Use
  Company Number: 7295243

PATIENT
  Age: 23 Year
  Sex: Female

DRUGS (1)
  1. LEVOTHYROXINE (LEVOTHYROXINE) (LEVOTHYROXINE) [Suspect]
     Indication: PRODUCT USED FOR UNKNOWN INDICATION
     Route: 048
     Dates: start: 20140506

REACTIONS (3)
  - Haemorrhage [None]
  - Thrombosis [None]
  - Menorrhagia [None]
